FAERS Safety Report 6851532-8 (Version None)
Quarter: 2010Q3

REPORT INFORMATION
  Report Type: 
  Country: None (occurrence: None)
  Receive Date: 20100717
  Receipt Date: 20080118
  Transmission Date: 20110219
  Serious: No
  Sender: FDA-Public Use
  Company Number: US-PFIZER INC-2008006627

PATIENT
  Sex: Female
  Weight: 104.54 kg

DRUGS (8)
  1. CHANTIX [Suspect]
     Indication: SMOKING CESSATION THERAPY
     Dates: start: 20080108
  2. PREVACID [Concomitant]
  3. LORAZEPAM [Concomitant]
  4. ZYRTEC [Concomitant]
  5. LUNESTA [Concomitant]
  6. HYDROCHLOROTHIAZIDE [Concomitant]
  7. EFFEXOR [Concomitant]
  8. ACETYLSALICYLIC ACID [Concomitant]

REACTIONS (2)
  - OROPHARYNGEAL PAIN [None]
  - SLEEP DISORDER [None]
